FAERS Safety Report 6915583-7 (Version None)
Quarter: 2010Q3

REPORT INFORMATION
  Report Type: 
  Country: None (occurrence: None)
  Receive Date: 20100804
  Receipt Date: 20100708
  Transmission Date: 20110219
  Serious: Yes (Hospitalization)
  Sender: FDA-Public Use
  Company Number: THQ2010A00666

PATIENT
  Age: 63 Year
  Sex: Male

DRUGS (13)
  1. PIOGLITAZONE HCL [Suspect]
     Indication: DIABETES MELLITUS
     Dates: start: 20080612
  2. BYETTA [Suspect]
     Indication: DIABETES MELLITUS
     Dosage: 5 MCG, INTRAMUSCULAR; 10 MCG. INTRAMUSCULAR
     Route: 030
     Dates: start: 20061123, end: 20061220
  3. BYETTA [Suspect]
     Indication: DIABETES MELLITUS
     Dosage: 5 MCG, INTRAMUSCULAR; 10 MCG. INTRAMUSCULAR
     Route: 030
     Dates: start: 20061221, end: 20100220
  4. BYETTA [Suspect]
     Indication: DIABETES MELLITUS
     Dosage: 5 MCG, INTRAMUSCULAR; 10 MCG. INTRAMUSCULAR
     Route: 030
     Dates: start: 20100225
  5. GLIMEPIRIDE [Suspect]
     Indication: DIABETES MELLITUS
     Dates: end: 20100220
  6. GLIMEPIRIDE [Suspect]
     Indication: DIABETES MELLITUS
     Dates: start: 20100225
  7. AVANDIA [Suspect]
     Indication: DIABETES MELLITUS
     Dates: start: 20070101, end: 20080611
  8. AVANDIA [Suspect]
     Indication: DIABETES MELLITUS
     Dates: start: 20100225
  9. METFORMIN [Suspect]
     Indication: DIABETES MELLITUS
     Dates: start: 20040528, end: 20100220
  10. METFORMIN [Suspect]
     Indication: DIABETES MELLITUS
     Dates: start: 20100225, end: 20100421
  11. EXENATIDE UNK STRENGTH PEN [Concomitant]
  12. DISPOSABLE [Concomitant]
  13. DEVICE (ANTI-DIABETICS) [Concomitant]

REACTIONS (4)
  - HAEMATOCRIT DECREASED [None]
  - HAEMOGLOBIN DECREASED [None]
  - RENAL CANCER [None]
  - RENAL VEIN THROMBOSIS [None]
